FAERS Safety Report 9275057 (Version 1)
Quarter: 2013Q2

REPORT INFORMATION
  Report Type: Spontaneous
  Country: US (occurrence: None)
  Receive Date: 20130501
  Receipt Date: 20130501
  Transmission Date: 20140414
  Serious: Yes (Other)
  Sender: FDA-Public Use
  Company Number: None

PATIENT
  Age: 31 Year
  Sex: Female
  Weight: 63.96 kg

DRUGS (1)
  1. CERVIDIL [Suspect]

REACTIONS (3)
  - Menstruation irregular [None]
  - Menorrhagia [None]
  - Oligomenorrhoea [None]
